FAERS Safety Report 13221192 (Version 1)
Quarter: 2017Q1

REPORT INFORMATION
  Report Type: Other
  Country: US (occurrence: US)
  Receive Date: 20170211
  Receipt Date: 20170211
  Transmission Date: 20170428
  Serious: No
  Sender: FDA-Public Use
  Company Number: US-ACORDA-ACO_129450_2016

PATIENT
  Age: 66 Year
  Sex: Female

DRUGS (2)
  1. AMPYRA [Suspect]
     Active Substance: DALFAMPRIDINE
     Indication: GAIT DISTURBANCE
     Dosage: 10 MG, BID
     Route: 048
     Dates: start: 20160828
  2. AMPYRA [Suspect]
     Active Substance: DALFAMPRIDINE
     Dosage: 10 MG, QD
     Route: 048
     Dates: start: 20160919, end: 20161104

REACTIONS (11)
  - Impaired driving ability [Recovered/Resolved]
  - Vision blurred [Recovered/Resolved]
  - Therapy cessation [Recovered/Resolved]
  - Dysphagia [Recovered/Resolved]
  - Cognitive disorder [Recovered/Resolved]
  - Abdominal discomfort [Recovered/Resolved]
  - Multiple sclerosis [Recovered/Resolved]
  - Dizziness [Recovered/Resolved]
  - Gastrointestinal pain [Recovered/Resolved]
  - Fatigue [Recovered/Resolved with Sequelae]
  - Inappropriate schedule of drug administration [Unknown]

NARRATIVE: CASE EVENT DATE: 20161013
